FAERS Safety Report 7736631-0 (Version None)
Quarter: 2011Q3

REPORT INFORMATION
  Report Type: 
  Country: None (occurrence: None)
  Receive Date: 20110908
  Receipt Date: 20110905
  Transmission Date: 20111222
  Serious: Yes (Other)
  Sender: FDA-Public Use
  Company Number: GB-PFIZER INC-2011207747

PATIENT
  Age: 36 Year
  Sex: Male
  Weight: 110 kg

DRUGS (2)
  1. VARENICLINE TARTRATE [Suspect]
     Indication: SMOKING CESSATION THERAPY
     Dosage: UNK
     Route: 048
     Dates: start: 20110524
  2. VARENICLINE TARTRATE [Suspect]
     Dosage: 1 DF, 2X/DAY
     Route: 048
     Dates: start: 20110606, end: 20110808

REACTIONS (4)
  - DEPRESSED MOOD [None]
  - MENTAL DISORDER [None]
  - NIGHTMARE [None]
  - DEPRESSION [None]
